FAERS Safety Report 5571872-2 (Version None)
Quarter: 2007Q4

REPORT INFORMATION
  Report Type: 
  Country: None (occurrence: None)
  Receive Date: 20071221
  Receipt Date: 20071214
  Transmission Date: 20080405
  Serious: Yes (Hospitalization)
  Sender: FDA-Public Use
  Company Number: US-ABBOTT-07P-163-0429935-00

PATIENT
  Sex: Female
  Weight: 145 kg

DRUGS (2)
  1. HUMIRA [Suspect]
     Indication: PSORIASIS
     Route: 058
     Dates: start: 20071030
  2. HUMIRA [Suspect]
     Route: 058
     Dates: end: 20070801

REACTIONS (3)
  - COLOSTOMY [None]
  - HERNIA [None]
  - HERNIA GANGRENOUS [None]
